FAERS Safety Report 5059871-0 (Version None)
Quarter: 2006Q3

REPORT INFORMATION
  Report Type: 
  Country: None (occurrence: None)
  Receive Date: 20060718
  Receipt Date: 20060629
  Transmission Date: 20061208
  Serious: Yes (Death, Hospitalization)
  Sender: FDA-Public Use
  Company Number: NL200512000087

PATIENT
  Age: 68 Year
  Sex: Male
  Weight: 1.8 kg

DRUGS (7)
  1. GEMCITABINE [Suspect]
     Indication: NON-SMALL CELL LUNG CANCER
     Dosage: 2400 MG, Q3W, INTRAVENOUS
     Route: 042
     Dates: start: 20050812, end: 20051102
  2. CISPLATIN [Suspect]
     Indication: NON-SMALL CELL LUNG CANCER
     Dosage: 150 MG, Q3W, INTRAVENOUS
     Route: 042
     Dates: start: 20050812, end: 20051102
  3. DICLOFENAC (DICLOFENAC) [Concomitant]
  4. ACETAMINOPHEN [Concomitant]
  5. ACENOCOUMAROL (ACENOCOUMAROL) [Concomitant]
  6. FUROSEMIDE [Concomitant]
  7. LOSEC (OMEPRAZOLE) [Concomitant]

REACTIONS (6)
  - CAMPYLOBACTER INFECTION [None]
  - CULTURE STOOL POSITIVE [None]
  - DISEASE PROGRESSION [None]
  - GASTROENTERITIS [None]
  - ILEUS [None]
  - METASTASES TO LIVER [None]
